FAERS Safety Report 8115223 (Version 4)
Quarter: 2014Q4

REPORT INFORMATION
  Report Type: Spontaneous
  Country: US (occurrence: US)
  Receive Date: 20110831
  Receipt Date: 20141104
  Transmission Date: 20150529
  Serious: Yes (Hospitalization, Other)
  Sender: FDA-Public Use
  Company Number: US-GLAXOSMITHKLINE-A0942533A

PATIENT
  Age: 59 Year
  Sex: Male

DRUGS (8)
  1. KEPPRA [Concomitant]
     Active Substance: LEVETIRACETAM
  2. LAMICTAL XR [Suspect]
     Active Substance: LAMOTRIGINE
     Indication: SEIZURE
     Dosage: UNK
     Dates: start: 20090917
  3. LAMOTRIGINE. [Suspect]
     Active Substance: LAMOTRIGINE
     Indication: SEIZURE
     Route: 065
     Dates: start: 201109
  4. DILANTIN [Concomitant]
     Active Substance: PHENYTOIN
  5. ASPIRIN. [Concomitant]
     Active Substance: ASPIRIN
  6. LEVETIRACETAM. [Suspect]
     Active Substance: LEVETIRACETAM
     Indication: PRODUCT USED FOR UNKNOWN INDICATION
     Route: 065
     Dates: start: 201109
  7. VYTORIN [Concomitant]
     Active Substance: EZETIMIBE\SIMVASTATIN
  8. MULTIVITAMIN [Concomitant]
     Active Substance: VITAMINS

REACTIONS (24)
  - Chromaturia [Unknown]
  - Faeces discoloured [Unknown]
  - Anger [Unknown]
  - Loss of consciousness [Unknown]
  - Aphasia [Recovered/Resolved]
  - Personality change [Unknown]
  - Balance disorder [Unknown]
  - Skin burning sensation [Unknown]
  - Coordination abnormal [Unknown]
  - Hostility [Recovered/Resolved]
  - Glossodynia [Unknown]
  - Disorientation [Unknown]
  - Seizure [Recovered/Resolved]
  - Aggression [Unknown]
  - Feeling abnormal [Recovered/Resolved]
  - Depressed level of consciousness [Recovered/Resolved]
  - Confusional state [Unknown]
  - Therapeutic response changed [Unknown]
  - Aura [Recovered/Resolved]
  - Irritability [Recovered/Resolved]
  - Paraesthesia [Unknown]
  - Visual impairment [Unknown]
  - Screaming [Unknown]
  - Sleep disorder [Unknown]

NARRATIVE: CASE EVENT DATE: 201109
